FAERS Safety Report 9672498 (Version 4)
Quarter: 2014Q4

REPORT INFORMATION
  Report Type: Spontaneous
  Country: GB (occurrence: GB)
  Receive Date: 20131106
  Receipt Date: 20141031
  Transmission Date: 20150529
  Serious: Yes (Death)
  Sender: FDA-Public Use
  Company Number: GB-BAXTER-2013BAX042999

PATIENT
  Age: 86 Year
  Sex: Female
  Weight: 70 kg

DRUGS (11)
  1. METRONIDAZOLE 500 MG / 100 ML INTRAVENOUS INFUSION [Suspect]
     Active Substance: METRONIDAZOLE
     Indication: LIVER ABSCESS
     Route: 065
     Dates: start: 20131025, end: 20131025
  2. TAZOBACTUM [Suspect]
     Active Substance: TAZOBACTAM
     Indication: LIVER ABSCESS
     Route: 042
     Dates: start: 20131018, end: 20131025
  3. BRINZOLAMIDE [Concomitant]
     Active Substance: BRINZOLAMIDE
     Indication: SEPSIS
  4. MAGNESIUM GLYCEROPHOSPHATE [Concomitant]
     Active Substance: MAGNESIUM GLYCEROPHOSPHATE
     Indication: BLOOD MAGNESIUM DECREASED
     Route: 048
     Dates: start: 20131018, end: 20131025
  5. PIPERACILIN COMP [Suspect]
     Active Substance: PIPERACILLIN SODIUM\TAZOBACTAM SODIUM
     Indication: LIVER ABSCESS
     Route: 042
     Dates: start: 20131018, end: 20131025
  6. PIPERACILIN COMP [Suspect]
     Active Substance: PIPERACILLIN SODIUM\TAZOBACTAM SODIUM
     Indication: SEPSIS
  7. TAZOBACTUM [Suspect]
     Active Substance: TAZOBACTAM
     Indication: SEPSIS
  8. BRINZOLAMIDE [Concomitant]
     Active Substance: BRINZOLAMIDE
     Indication: GLAUCOMA
     Route: 061
  9. MAGNESIUM GLYCEROPHOSPHATE [Concomitant]
     Active Substance: MAGNESIUM GLYCEROPHOSPHATE
     Indication: SEPSIS
  10. LALTANOPROST [Concomitant]
     Indication: SEPSIS
  11. LALTANOPROST [Concomitant]
     Indication: GLAUCOMA
     Route: 061
     Dates: start: 20131018, end: 20131025

REACTIONS (2)
  - Anaphylactic reaction [Fatal]
  - Drug administration error [Unknown]

NARRATIVE: CASE EVENT DATE: 20131025
